FAERS Safety Report 6676328-1 (Version None)
Quarter: 2010Q2

REPORT INFORMATION
  Report Type: 
  Country: None (occurrence: None)
  Receive Date: 20100412
  Receipt Date: 20100406
  Transmission Date: 20101027
  Serious: Yes (Disabling)
  Sender: FDA-Public Use
  Company Number: JP-BAYER-200911260BYL

PATIENT
  Age: 73 Year
  Sex: Female
  Weight: 39 kg

DRUGS (2)
  1. NEXAVAR [Suspect]
     Indication: RENAL CELL CARCINOMA
     Dosage: UNIT DOSE: 200 MG
     Route: 048
     Dates: start: 20090303, end: 20090526
  2. NEXAVAR [Suspect]
     Dosage: UNIT DOSE: 200 MG
     Route: 048
     Dates: start: 20090707, end: 20090720

REACTIONS (5)
  - CARDIAC FAILURE [None]
  - DYSPNOEA [None]
  - HEPATIC FUNCTION ABNORMAL [None]
  - HYPERTENSION [None]
  - PALMAR-PLANTAR ERYTHRODYSAESTHESIA SYNDROME [None]
